FAERS Safety Report 4949676-0 (Version None)
Quarter: 2006Q1

REPORT INFORMATION
  Report Type: 
  Country: None (occurrence: None)
  Receive Date: 20060315
  Receipt Date: 20060302
  Transmission Date: 20060701
  Serious: Yes (Other)
  Sender: FDA-Public Use
  Company Number: 2006030044

PATIENT
  Age: 45 Year
  Sex: Male
  Weight: 103.4201 kg

DRUGS (1)
  1. VISINE-A [Suspect]
     Indication: HYPERSENSITIVITY
     Dosage: 1 DROP ONCE IN EACH EYE; OPHTHALMIC
     Route: 047
     Dates: start: 20060302, end: 20060302

REACTIONS (2)
  - CHEMICAL BURNS OF EYE [None]
  - NO REACTION ON PREVIOUS EXPOSURE TO DRUG [None]
